FAERS Safety Report 7717471-5 (Version None)
Quarter: 2011Q3

REPORT INFORMATION
  Report Type: 
  Country: None (occurrence: None)
  Receive Date: 20110830
  Receipt Date: 20110719
  Transmission Date: 20111222
  Serious: Yes (Other)
  Sender: FDA-Public Use
  Company Number: US-KINGPHARMUSA00001-K201100860

PATIENT
  Sex: Female

DRUGS (9)
  1. EMBEDA [Suspect]
     Indication: LUMBAR SPINAL STENOSIS
  2. AMLODIPINE [Concomitant]
  3. CALCIUM CARBONATE [Concomitant]
     Dosage: 2400 MG, QHS
     Route: 048
  4. THYROID PREPARATIONS [Concomitant]
  5. SENOSIDE [Concomitant]
  6. EMBEDA [Suspect]
     Indication: FIBROMYALGIA
     Dosage: 20 MG, BID
     Route: 048
     Dates: start: 20101101
  7. OMEPRAZOLE [Concomitant]
  8. EMBEDA [Suspect]
     Indication: OSTEOPOROSIS
     Dosage: 30 MG, BID
     Route: 048
     Dates: end: 20110201
  9. VENLAFAXINE HYDROCHLORIDE [Concomitant]
     Dosage: 75 MG, QD

REACTIONS (2)
  - FAECALOMA [None]
  - CONSTIPATION [None]
